FAERS Safety Report 8321911 (Version 3)
Quarter: 2012Q4

REPORT INFORMATION
  Report Type: 
  Country: JP (occurrence: JP)
  Receive Date: 20120104
  Receipt Date: 20120913
  Transmission Date: 20130627
  Serious: Yes (Hospitalization, Other)
  Sender: FDA-Public Use
  Company Number: GB-GILEAD-2011-0048323

PATIENT
  Age: 75 None
  Sex: Male

DRUGS (5)
  1. HEPSERA [Suspect]
     Indication: HEPATITIS B
     Dosage: 100MG Per day
     Route: 048
     Dates: start: 20050425
  2. ZEFIX [Concomitant]
     Indication: HEPATITIS B
     Dosage: 10MG per day
     Route: 048
     Dates: start: 20040826
  3. URSO                               /00465701/ [Concomitant]
     Indication: PRODUCT USED FOR UNKNOWN INDICATION
     Dosage: 300MG per day
     Route: 048
     Dates: start: 20040607
  4. ALFAROL [Concomitant]
     Indication: PRODUCT USED FOR UNKNOWN INDICATION
     Dosage: 1MCG per day
     Route: 048
     Dates: start: 20110809
  5. LYRICA [Concomitant]
     Indication: PRODUCT USED FOR UNKNOWN INDICATION
     Dosage: 75MG per day
     Route: 048
     Dates: start: 2010

REACTIONS (16)
  - Renal impairment [Unknown]
  - Renal tubular acidosis [Unknown]
  - Fanconi syndrome [Recovered/Resolved with Sequelae]
  - Arthralgia [Unknown]
  - Gait disturbance [Unknown]
  - Body height decreased [Unknown]
  - Weight decreased [Unknown]
  - Spinal deformity [Unknown]
  - Deformity thorax [Unknown]
  - Blood alkaline phosphatase increased [Unknown]
  - Blood chloride increased [Unknown]
  - Blood calcium increased [Unknown]
  - Pain in extremity [Unknown]
  - Osteomalacia [Unknown]
  - Blood creatinine increased [Unknown]
  - Blood phosphorus decreased [Unknown]
